FAERS Safety Report 4425110-4 (Version None)
Quarter: 2004Q3

REPORT INFORMATION
  Report Type: 
  Country: None (occurrence: None)
  Receive Date: 20040813
  Receipt Date: 20040802
  Transmission Date: 20050211
  Serious: Yes (Hospitalization)
  Sender: FDA-Public Use
  Company Number: FR-JNJFOC-20040803460

PATIENT
  Sex: Male
  Weight: 24 kg

DRUGS (6)
  1. EPITOMAX [Suspect]
     Route: 049
  2. EPITOMAX [Suspect]
     Route: 049
  3. EPITOMAX [Suspect]
     Indication: EPILEPSY
     Route: 049
  4. LAMICTAL [Concomitant]
     Route: 065
  5. DEPAKINE [Concomitant]
     Route: 065
  6. RIVOTRIL [Concomitant]
     Route: 065

REACTIONS (3)
  - COMA [None]
  - CONDITION AGGRAVATED [None]
  - CONVULSION [None]
